FAERS Safety Report 18630848 (Version 1)
Quarter: 2020Q4

REPORT INFORMATION
  Report Type: Spontaneous
  Country: US (occurrence: US)
  Receive Date: 20201218
  Receipt Date: 20201218
  Transmission Date: 20210114
  Serious: No
  Sender: FDA-Public Use
  Company Number: US-SA-2020SA361206

PATIENT

DRUGS (11)
  1. COREG [Concomitant]
     Active Substance: CARVEDILOL
  2. POTASSIUM [Concomitant]
     Active Substance: POTASSIUM
  3. CALCIUM [Concomitant]
     Active Substance: CALCIUM
  4. METHOTREXATE. [Concomitant]
     Active Substance: METHOTREXATE
  5. NEXIUM I.V. [Concomitant]
     Active Substance: ESOMEPRAZOLE SODIUM
  6. FOLIC ACID. [Concomitant]
     Active Substance: FOLIC ACID
  7. ASPIRIN [ACETYLSALICYLIC ACID] [Concomitant]
     Active Substance: ASPIRIN
  8. VITAMINS NOS [Concomitant]
     Active Substance: VITAMINS
  9. NORVASC [Concomitant]
     Active Substance: AMLODIPINE BESYLATE
  10. KEVZARA [Suspect]
     Active Substance: SARILUMAB
     Dosage: 1 DF, QOW
     Route: 058
  11. OLMESARTAN [Concomitant]
     Active Substance: OLMESARTAN

REACTIONS (1)
  - Infection [Not Recovered/Not Resolved]
